FAERS Safety Report 5657886-2 (Version None)
Quarter: 2008Q1

REPORT INFORMATION
  Report Type: 
  Country: None (occurrence: None)
  Receive Date: 20080305
  Receipt Date: 20080220
  Transmission Date: 20080703
  Serious: Yes (Life-Threatening, Hospitalization)
  Sender: FDA-Public Use
  Company Number: 02100-JPN-07-0172

PATIENT
  Age: 79 Year
  Sex: Male
  Weight: 66.6 kg

DRUGS (13)
  1. PLETAL [Suspect]
     Indication: CEREBRAL INFARCTION
     Dosage: 100 MG, BID
     Route: 048
     Dates: start: 20060531, end: 20071030
  2. PLETAL [Suspect]
     Indication: CEREBRAL INFARCTION
     Dosage: 81 MG, QD
     Route: 048
     Dates: start: 20060531, end: 20071030
  3. ZANTAC [Concomitant]
  4. GRAMALIL (TIAPRIDE HYDROCHLORIDE) POWDER [Concomitant]
  5. LASIX [Concomitant]
  6. FLIVAS (NAFTOPIDIL) TABLET [Concomitant]
  7. VOLLEY:SOL. (BUTENAFINE HYDROCHLORIDE) LIQUID [Concomitant]
  8. BLADDERON (FLAVOXATE HYDROCHLORIDE) TABLET [Concomitant]
  9. NOVOLIN 30R (INSULIN INJECTION, BIPHASIC) INJECTION [Concomitant]
  10. FLIVAS OD (NAFTOPIDIL) TABLET [Concomitant]
  11. PRUSENNID (SENNOSIDE) TABLET [Concomitant]
  12. ACUATIM (NADIFLOXACIN) CREAM [Concomitant]
  13. TOPSYM (FLUOCINONIDE) CREAM [Concomitant]

REACTIONS (18)
  - ANGINA UNSTABLE [None]
  - ATRIOVENTRICULAR BLOCK FIRST DEGREE [None]
  - BLOOD GLUCOSE INCREASED [None]
  - BLOOD UREA INCREASED [None]
  - CARDIAC FAILURE [None]
  - CHOLECYSTITIS [None]
  - CORONARY ARTERY STENOSIS [None]
  - DIABETES MELLITUS [None]
  - GAIT DISTURBANCE [None]
  - GASTROINTESTINAL HAEMORRHAGE [None]
  - GLYCOSYLATED HAEMOGLOBIN INCREASED [None]
  - HAEMOGLOBIN DECREASED [None]
  - HYPOGLYCAEMIA [None]
  - MYOCARDIAL INFARCTION [None]
  - PNEUMONIA [None]
  - PNEUMONIA ASPIRATION [None]
  - PSEUDOMEMBRANOUS COLITIS [None]
  - PYREXIA [None]
